FAERS Safety Report 8023376-5 (Version None)
Quarter: 2012Q1

REPORT INFORMATION
  Report Type: 
  Country: None (occurrence: None)
  Receive Date: 20120104
  Receipt Date: 20111229
  Transmission Date: 20120608
  Serious: Yes (Other)
  Sender: FDA-Public Use
  Company Number: US-PFIZER INC-2011316110

PATIENT
  Sex: Female

DRUGS (2)
  1. PAMELOR [Suspect]
     Dosage: UNK
  2. INDERAL [Suspect]
     Dosage: UNK

REACTIONS (4)
  - DRUG HYPERSENSITIVITY [None]
  - LOSS OF CONSCIOUSNESS [None]
  - VENOUS INSUFFICIENCY [None]
  - DRUG INTERACTION [None]
